FAERS Safety Report 18339994 (Version 1)
Quarter: 2020Q4

REPORT INFORMATION
  Report Type: Spontaneous
  Country: DE (occurrence: DE)
  Receive Date: 20201002
  Receipt Date: 20201002
  Transmission Date: 20210113
  Serious: Yes (Hospitalization)
  Sender: FDA-Public Use
  Company Number: DE-JNJFOC-20200940998

PATIENT
  Age: 30 Year
  Sex: Female

DRUGS (8)
  1. XEPLION [Suspect]
     Active Substance: PALIPERIDONE PALMITATE
     Indication: SCHIZOPHRENIA
     Route: 030
  2. XEPLION [Suspect]
     Active Substance: PALIPERIDONE PALMITATE
  3. XEPLION [Suspect]
     Active Substance: PALIPERIDONE PALMITATE
  4. DOMINAL (PROTHIPENDYL HYDROCHLORIDE) [Concomitant]
     Active Substance: PROTHIPENDYL HYDROCHLORIDE
     Dosage: 80 MG BY NIGHT
  5. OLANZAPINE. [Concomitant]
     Active Substance: OLANZAPINE
     Dosage: 20 MG IN THE EVENING
  6. QUETIAPINE. [Concomitant]
     Active Substance: QUETIAPINE
     Dosage: 25 MG UP TO 3 TIMES AS NEEDED
  7. PIPAMPERONE [Concomitant]
     Active Substance: PIPAMPERONE
     Dosage: 40 MG UP TO 3 TIMES AS NEEDED.
  8. RISPERDAL [Concomitant]
     Active Substance: RISPERIDONE
     Dosage: ORAL 2 MG (2-0-2).
     Route: 048

REACTIONS (1)
  - Hospitalisation [Unknown]
